FAERS Safety Report 22291622 (Version 1)
Quarter: 2023Q2

REPORT INFORMATION
  Report Type: Spontaneous
  Country: IT (occurrence: IT)
  Receive Date: 20230507
  Receipt Date: 20230507
  Transmission Date: 20230722
  Serious: Yes (Other)
  Sender: FDA-Public Use
  Company Number: IT-MINISAL02-920859

PATIENT
  Age: 59 Year
  Sex: Female
  Weight: 68 kg

DRUGS (6)
  1. IRINOTECAN [Suspect]
     Active Substance: IRINOTECAN
     Indication: Pancreatic carcinoma
     Dosage: 230 MILLIGRAM, EVERY 14 DAYS
     Route: 042
     Dates: start: 20221221
  2. OXALIPLATIN [Suspect]
     Active Substance: OXALIPLATIN
     Indication: Pancreatic carcinoma
     Dosage: 140 MILLIGRAM, EVERY 14 DAYS
     Route: 042
  3. FLUOROURACIL [Suspect]
     Active Substance: FLUOROURACIL
     Indication: Pancreatic carcinoma
     Dosage: 4380 MILLIGRAM, EVERY 14 DAYS
     Route: 042
     Dates: start: 20221221
  4. POTASSIUM CHLORIDE [Concomitant]
     Active Substance: POTASSIUM CHLORIDE
     Indication: Product used for unknown indication
     Dosage: 4 DOSAGE FORM, ONCE A DAY (600MG; 4 CP/DAY (2 CP AFTER LUNCH, 2 CP AFTER DINNER)
     Route: 048
  5. CREON [Concomitant]
     Active Substance: PANCRELIPASE AMYLASE\PANCRELIPASE LIPASE\PANCRELIPASE PROTEASE
     Indication: Product used for unknown indication
     Dosage: 1000 UI; 5CP/DIE (1 CP A COLAZIONE, 2 CP A PRANZO, 2 CP A CENA).
     Route: 048
  6. PANTOPRAZOLE [Concomitant]
     Active Substance: PANTOPRAZOLE
     Indication: Product used for unknown indication
     Dosage: 40 MILLIGRAM, ONCE A DAY (1 DOSAGE UNIT/DAY)
     Route: 048

REACTIONS (4)
  - Neurotoxicity [Unknown]
  - Asthenia [Unknown]
  - Alopecia [Unknown]
  - Dysgeusia [Unknown]

NARRATIVE: CASE EVENT DATE: 20230301
